FAERS Safety Report 9529642 (Version 2)
Quarter: 2013Q4

REPORT INFORMATION
  Report Type: Spontaneous
  Country: JP (occurrence: JP)
  Receive Date: 20130917
  Receipt Date: 20131004
  Transmission Date: 20140711
  Serious: No
  Sender: FDA-Public Use
  Company Number: JP-ELI_LILLY_AND_COMPANY-JP201309002655

PATIENT
  Age: 93 Year
  Sex: Female
  Weight: 40 kg

DRUGS (5)
  1. FORTEO [Suspect]
     Indication: OSTEOPOROSIS
     Dosage: UNK
     Route: 058
     Dates: start: 20130906, end: 20130906
  2. METHYCOBAL [Concomitant]
     Dosage: UNK UNK, TID
     Route: 048
     Dates: start: 20090928
  3. MUCOSTA [Concomitant]
     Dosage: UNK, TID
     Route: 048
     Dates: start: 20090928
  4. XYLOCAIN                           /00033402/ [Concomitant]
     Dosage: 2 ML, UNK
     Route: 014
     Dates: start: 20081118
  5. DEPO-MEDROL [Concomitant]
     Dosage: 20 MG, UNK
     Route: 014
     Dates: start: 20081118

REACTIONS (2)
  - Depressed level of consciousness [Recovered/Resolved]
  - Blood pressure decreased [Recovered/Resolved]
